FAERS Safety Report 9801605 (Version 1)
Quarter: 2014Q1

REPORT INFORMATION
  Report Type: Spontaneous
  Country: US (occurrence: US)
  Receive Date: 20140107
  Receipt Date: 20140107
  Transmission Date: 20141002
  Serious: No
  Sender: FDA-Public Use
  Company Number: US-EISAI INC-AP356-00343-SPO-US

PATIENT
  Sex: Female

DRUGS (1)
  1. BELVIQ (LORCASERIN HYDROCHLORIDE) [Suspect]
     Indication: WEIGHT DECREASED
     Dosage: UNKNOWN
     Route: 048
     Dates: start: 201312, end: 201312

REACTIONS (2)
  - Feeling drunk [Recovered/Resolved]
  - Euphoric mood [Recovered/Resolved]
